FAERS Safety Report 8454111-4 (Version None)
Quarter: 2012Q2

REPORT INFORMATION
  Report Type: 
  Country: None (occurrence: None)
  Receive Date: 20120620
  Receipt Date: 20120614
  Transmission Date: 20120825
  Serious: Yes (Hospitalization, Other)
  Sender: FDA-Public Use
  Company Number: BE-PFIZER INC-2012111773

PATIENT
  Age: 17 Year
  Sex: Male

DRUGS (2)
  1. LYRICA [Suspect]
     Indication: EPILEPSY
     Dosage: 75 MG, 1X/DAY
     Route: 048
     Dates: start: 20120430, end: 20120507
  2. TRILEPTAL [Concomitant]
     Dosage: UNK

REACTIONS (8)
  - HYPONATRAEMIA [None]
  - THIRST [None]
  - VOMITING [None]
  - PETIT MAL EPILEPSY [None]
  - DYSGEUSIA [None]
  - EPILEPSY [None]
  - URINARY RETENTION [None]
  - POLYDIPSIA [None]
